FAERS Safety Report 9064909 (Version 1)
Quarter: 2013Q1

REPORT INFORMATION
  Report Type: Spontaneous
  Country: US (occurrence: US)
  Receive Date: 20130206
  Receipt Date: 20130206
  Transmission Date: 20140127
  Serious: Yes (Hospitalization)
  Sender: FDA-Public Use
  Company Number: US-BAYER-2013-016117

PATIENT
  Age: 83 Year
  Sex: Male
  Weight: 75.3 kg

DRUGS (4)
  1. XARELTO [Suspect]
     Indication: CEREBROVASCULAR ACCIDENT PROPHYLAXIS
     Dosage: 10 MG, UNK
     Route: 048
     Dates: start: 201209
  2. XARELTO [Interacting]
     Indication: ATRIAL FIBRILLATION
     Route: 048
     Dates: start: 201209
  3. CLOPIDOGREL [Interacting]
     Indication: PRODUCT USED FOR UNKNOWN INDICATION
     Dosage: 75 MG, UNK
     Route: 065
  4. ACETYLSALICYLIC ACID [Interacting]
     Dosage: 81 MG, UNK
     Route: 065

REACTIONS (1)
  - Gastrointestinal haemorrhage [Recovered/Resolved]
